FAERS Safety Report 5853473-1 (Version None)
Quarter: 2008Q3

REPORT INFORMATION
  Report Type: 
  Country: None (occurrence: None)
  Receive Date: 20080820
  Receipt Date: 20080807
  Transmission Date: 20090109
  Serious: Yes (Other)
  Sender: FDA-Public Use
  Company Number: 100#08#2008-04062

PATIENT
  Age: 62 Year
  Sex: Female

DRUGS (2)
  1. SERTRALINE [Suspect]
     Indication: MAJOR DEPRESSION
     Dosage: DOSES INCREASING TO 100 MG; HOSPITAL DAY 111
  2. METHYLPHENIDATE HCL [Suspect]
     Indication: MAJOR DEPRESSION
     Dosage: 10 MG;   HOSPITAL  DAY 125

REACTIONS (3)
  - DRUG EFFECT INCREASED [None]
  - NO THERAPEUTIC RESPONSE [None]
  - SEROTONIN SYNDROME [None]
